FAERS Safety Report 16914971 (Version 9)
Quarter: 2022Q1

REPORT INFORMATION
  Report Type: Spontaneous
  Country: PT (occurrence: PT)
  Receive Date: 20191014
  Receipt Date: 20220303
  Transmission Date: 20220423
  Serious: Yes (Death, Hospitalization, Other)
  Sender: FDA-Public Use
  Company Number: PT-MYLANLABS-2019M1095933

PATIENT
  Age: 47 Year
  Sex: Male

DRUGS (12)
  1. QUETIAPINE [Interacting]
     Active Substance: QUETIAPINE
     Indication: Schizophrenia
     Dosage: UNK
     Route: 065
  2. QUETIAPINE [Interacting]
     Active Substance: QUETIAPINE
     Indication: Intellectual disability
  3. HALOPERIDOL [Interacting]
     Active Substance: HALOPERIDOL
     Indication: Schizophrenia
     Dosage: UNK
     Route: 065
  4. HALOPERIDOL [Interacting]
     Active Substance: HALOPERIDOL
     Indication: Intellectual disability
  5. ZOTEPINE [Interacting]
     Active Substance: ZOTEPINE
     Indication: Schizophrenia
     Dosage: UNK
     Route: 065
  6. ZOTEPINE [Interacting]
     Active Substance: ZOTEPINE
     Indication: Intellectual disability
  7. CYAMEMAZINE [Interacting]
     Active Substance: CYAMEMAZINE
     Indication: Schizophrenia
     Dosage: UNK
     Route: 065
  8. CYAMEMAZINE [Interacting]
     Active Substance: CYAMEMAZINE
     Indication: Intellectual disability
  9. BIPERIDEN [Interacting]
     Active Substance: BIPERIDEN
     Indication: Schizophrenia
     Dosage: UNK
     Route: 065
  10. BIPERIDEN [Interacting]
     Active Substance: BIPERIDEN
     Indication: Intellectual disability
  11. CARBAMAZEPINE [Concomitant]
     Active Substance: CARBAMAZEPINE
     Indication: Schizophrenia
     Dosage: UNK
  12. DOMPERIDONE [Concomitant]
     Active Substance: DOMPERIDONE
     Indication: Schizophrenia
     Dosage: UNK
     Route: 065

REACTIONS (5)
  - Death [Fatal]
  - Shock [Unknown]
  - Colitis ischaemic [Recovered/Resolved]
  - Depressed level of consciousness [Unknown]
  - Drug interaction [Unknown]
